FAERS Safety Report 23358331 (Version 1)
Quarter: 2024Q1

REPORT INFORMATION
  Report Type: Spontaneous
  Country: US (occurrence: US)
  Receive Date: 20240102
  Receipt Date: 20240102
  Transmission Date: 20240410
  Serious: No
  Sender: FDA-Public Use
  Company Number: US-TRIS PHARMA, INC.-23US011258

PATIENT

DRUGS (2)
  1. DYANAVEL XR [Suspect]
     Active Substance: AMPHETAMINE
     Indication: Attention deficit hyperactivity disorder
     Dosage: 10 MILLIGRAM, QD
     Route: 048
     Dates: start: 202309, end: 202312
  2. DYANAVEL XR [Suspect]
     Active Substance: AMPHETAMINE
     Dosage: 5 MILLIGRAM, QD
     Route: 048
     Dates: start: 202309, end: 202309

REACTIONS (1)
  - Decreased appetite [Recovered/Resolved]
